FAERS Safety Report 8737518 (Version 3)
Quarter: 2013Q2

REPORT INFORMATION
  Report Type: Report from Study
  Country: JP (occurrence: JP)
  Receive Date: 20120822
  Receipt Date: 20130425
  Transmission Date: 20140414
  Serious: Yes (Disabling)
  Sender: FDA-Public Use
  Company Number: JP-009507513-1208JPN000802

PATIENT
  Age: 60 Year
  Sex: Male
  Weight: 56 kg

DRUGS (5)
  1. PEGINTRON [Suspect]
     Indication: CHRONIC HEPATITIS C
     Dosage: 1.5 MICROGRAM PER KILOGRAM, QW, DAILY DOSE UNKNOWN
     Route: 058
     Dates: start: 20120529, end: 20120717
  2. REBETOL [Suspect]
     Indication: CHRONIC HEPATITIS C
     Dosage: 600 MG, QD
     Route: 048
     Dates: start: 20120529, end: 20120724
  3. TELAVIC [Suspect]
     Indication: CHRONIC HEPATITIS C
     Dosage: 2250 MG, QD
     Route: 048
     Dates: start: 20120529, end: 20120531
  4. TELAVIC [Suspect]
     Dosage: 1500 MG, QD
     Route: 048
     Dates: start: 20120601, end: 20120724
  5. URSO [Concomitant]
     Indication: CHRONIC HEPATITIS C
     Dosage: 300 MG, QD, FORMUATION: POR
     Route: 048
     Dates: start: 20100715

REACTIONS (5)
  - Rash [Recovering/Resolving]
  - Rash [Recovering/Resolving]
  - Cheilitis [Recovering/Resolving]
  - Cheilitis [Recovering/Resolving]
  - Rash [Recovering/Resolving]
